FAERS Safety Report 4991517-X (Version None)
Quarter: 2006Q2

REPORT INFORMATION
  Report Type: 
  Country: None (occurrence: None)
  Receive Date: 20060502
  Receipt Date: 20060419
  Transmission Date: 20061013
  Serious: Yes (Death)
  Sender: FDA-Public Use
  Company Number: 2006-00923

PATIENT
  Age: 75 Year
  Sex: Female
  Weight: 60.2 kg

DRUGS (7)
  1. VELCADE [Suspect]
     Indication: MULTIPLE MYELOMA
     Dosage: 1.30 MG/M2, INTRAVENOUS
     Route: 042
     Dates: start: 20060307
  2. MELPHALAN (MELPHALAN) VIAL [Suspect]
     Indication: MULTIPLE MYELOMA
     Dosage: 9.00 MG/M2, ORAL
     Route: 048
     Dates: start: 20060307
  3. PREDNISONE (PREDNISONE) VIA [Suspect]
     Indication: MULTIPLE MYELOMA
     Dosage: 60.00 MG/M2, ORAL
     Route: 048
     Dates: start: 20060307
  4. DILTIAZEM HYDROCHLORIDE [Concomitant]
  5. ACETYLSALICYLIC ACID SRT [Concomitant]
  6. LEVOTHYROXINE SODIUM [Concomitant]
  7. DEANXIT (FLUPENTIXOL, MELITRACEN) [Concomitant]

REACTIONS (1)
  - SUDDEN DEATH [None]
